FAERS Safety Report 5250781-2 (Version None)
Quarter: 2007Q1

REPORT INFORMATION
  Report Type: 
  Country: None (occurrence: None)
  Receive Date: 20070228
  Receipt Date: 20070227
  Transmission Date: 20070707
  Serious: Yes (Other)
  Sender: FDA-Public Use
  Company Number: US-GLAXOSMITHKLINE-A0640938A

PATIENT
  Age: 85 Year
  Sex: Male

DRUGS (2)
  1. BC HEADACHE POWDER [Suspect]
     Indication: PAIN
     Dosage: 1Z PER DAY
     Route: 048
     Dates: start: 19360101
  2. UNSPECIFIED MEDICATION [Concomitant]

REACTIONS (3)
  - GASTRIC HAEMORRHAGE [None]
  - INTESTINAL HAEMORRHAGE [None]
  - RECTAL HAEMORRHAGE [None]
